FAERS Safety Report 24701043 (Version 1)
Quarter: 2024Q4

REPORT INFORMATION
  Report Type: Spontaneous
  Country: AT (occurrence: AT)
  Receive Date: 20241205
  Receipt Date: 20241205
  Transmission Date: 20250115
  Serious: Yes (Hospitalization, Other)
  Sender: TEVA
  Company Number: None

PATIENT
  Age: 37 Year
  Sex: Female

DRUGS (123)
  1. DOCETAXEL [Suspect]
     Active Substance: DOCETAXEL
     Indication: Breast cancer metastatic
     Dosage: ONCE EVERY 3 WEEKS
     Route: 042
     Dates: start: 20170112, end: 20170202
  2. DOCETAXEL [Suspect]
     Active Substance: DOCETAXEL
     Indication: Breast cancer metastatic
     Dosage: ONCE EVERY 3 WEEKS
     Route: 042
     Dates: start: 20161020, end: 20161020
  3. DOCETAXEL [Suspect]
     Active Substance: DOCETAXEL
     Indication: Breast cancer metastatic
     Dosage: ONCE EVERY 3 WEEKS
     Route: 042
     Dates: start: 20161201, end: 20161222
  4. DOCETAXEL [Suspect]
     Active Substance: DOCETAXEL
     Indication: Breast cancer metastatic
     Dosage: ONCE EVERY 3 WEEKS
     Route: 048
     Dates: start: 20161111, end: 20161111
  5. MAGNESIUM CARBONATE\MAGNESIUM OXIDE [Concomitant]
     Active Substance: MAGNESIUM CARBONATE\MAGNESIUM OXIDE
     Indication: Product used for unknown indication
     Dosage: UNK
     Route: 065
  6. CLOBAZAM [Concomitant]
     Active Substance: CLOBAZAM
     Indication: Epilepsy
     Route: 048
     Dates: start: 20220201
  7. LEVETIRACETAM [Concomitant]
     Active Substance: LEVETIRACETAM
     Indication: Epilepsy
     Route: 048
     Dates: start: 20220201
  8. LEVETIRACETAM [Concomitant]
     Active Substance: LEVETIRACETAM
     Indication: Epilepsy
     Dosage: UNK
     Route: 065
  9. CYCLOPHOSPHAMIDE [Suspect]
     Active Substance: CYCLOPHOSPHAMIDE
     Indication: Breast cancer metastatic
     Route: 042
     Dates: start: 20161005
  10. AMINO ACIDS\DEXTROSE\ELECTROLYTES NOS\SOYBEAN OIL [Concomitant]
     Active Substance: AMINO ACIDS\DEXTROSE\ELECTROLYTES NOS\SOYBEAN OIL
     Indication: Product used for unknown indication
     Dosage: UNK
     Route: 065
  11. OSELTAMIVIR [Concomitant]
     Active Substance: OSELTAMIVIR
     Indication: Product used for unknown indication
     Dosage: UNK
     Route: 065
  12. CEOLAT [Concomitant]
     Indication: Prophylaxis of nausea and vomiting
     Dosage: TIME INTERVAL: AS NECESSARY
     Route: 048
     Dates: start: 20161112, end: 201702
  13. IBUPROFEN [Concomitant]
     Active Substance: IBUPROFEN
     Indication: Product used for unknown indication
     Dosage: UNK
     Route: 065
  14. SERTRALINE HYDROCHLORIDE [Concomitant]
     Active Substance: SERTRALINE HYDROCHLORIDE
     Indication: Product used for unknown indication
     Route: 048
     Dates: start: 201710
  15. TAZOBACTAM [Concomitant]
     Active Substance: TAZOBACTAM
     Indication: Product used for unknown indication
     Route: 042
     Dates: start: 20161208, end: 20161212
  16. LEVOCETIRIZINE [Concomitant]
     Active Substance: LEVOCETIRIZINE
     Indication: Product used for unknown indication
     Dosage: UNK
     Route: 065
     Dates: start: 20220801
  17. LOPERAMIDE HYDROCHLORIDE [Concomitant]
     Active Substance: LOPERAMIDE HYDROCHLORIDE
     Indication: Diarrhoea
     Route: 048
     Dates: start: 20171127
  18. XGEVA [Suspect]
     Active Substance: DENOSUMAB
     Indication: Prophylaxis
     Dosage: ONCE EVERY 1 MONTH
     Route: 058
     Dates: start: 20161201
  19. VIMPAT [Concomitant]
     Active Substance: LACOSAMIDE
     Indication: Product used for unknown indication
     Dosage: UNK
     Route: 065
     Dates: start: 20230602
  20. TUKYSA [Suspect]
     Active Substance: TUCATINIB
     Indication: HER2 positive breast cancer
     Dosage: 600 MG, QD (300 MG, BID)
     Route: 048
     Dates: start: 20210929, end: 20211023
  21. TUKYSA [Suspect]
     Active Substance: TUCATINIB
     Indication: HER2 positive breast cancer
     Dosage: 600 MILLIGRAM, QD (300 MG)
     Route: 048
     Dates: start: 20210430, end: 20210927
  22. TUKYSA [Suspect]
     Active Substance: TUCATINIB
     Indication: HER2 positive breast cancer
     Dosage: 1200 MG, QD (300 MG, BID)
     Route: 048
     Dates: start: 20210430
  23. TUCATINIB [Suspect]
     Active Substance: TUCATINIB
     Indication: HER2 positive breast cancer
     Dosage: 300 MG, MULTIPLE 1 DAYS
     Route: 048
     Dates: start: 20210929
  24. TUCATINIB [Suspect]
     Active Substance: TUCATINIB
     Indication: HER2 positive breast cancer
     Dosage: 300 MG, 0.5 DAY
     Route: 048
     Dates: start: 20210929
  25. TUCATINIB [Suspect]
     Active Substance: TUCATINIB
     Indication: HER2 positive breast cancer
     Route: 048
     Dates: start: 20210430, end: 20221023
  26. ZOFRAN [Concomitant]
     Active Substance: ONDANSETRON HYDROCHLORIDE
     Indication: Prophylaxis of nausea and vomiting
     Route: 048
     Dates: start: 20161123, end: 20170204
  27. ONDANSETRON HYDROCHLORIDE [Concomitant]
     Active Substance: ONDANSETRON HYDROCHLORIDE
     Indication: Nausea
     Dosage: TIME INTERVAL: AS NECESSARY
     Route: 048
     Dates: start: 20181105
  28. MILNACIPRAN [Concomitant]
     Active Substance: MILNACIPRAN
     Indication: Product used for unknown indication
     Dosage: UNK
     Route: 065
     Dates: start: 20221123, end: 20230713
  29. SPIRONOLACTONE [Concomitant]
     Active Substance: SPIRONOLACTONE
     Indication: Product used for unknown indication
     Dosage: UNK
     Route: 065
     Dates: start: 20230811
  30. ENHERTU [Suspect]
     Active Substance: FAM-TRASTUZUMAB DERUXTECAN-NXKI
     Indication: Breast cancer metastatic
     Dosage: ONCE EVERY 3 WEEKS
     Route: 042
     Dates: start: 20161020, end: 20161020
  31. ENHERTU [Suspect]
     Active Substance: FAM-TRASTUZUMAB DERUXTECAN-NXKI
     Indication: Breast cancer metastatic
     Dosage: ONCE EVERY 3 WEEKS
     Route: 042
     Dates: start: 20190906, end: 20190906
  32. ENHERTU [Suspect]
     Active Substance: FAM-TRASTUZUMAB DERUXTECAN-NXKI
     Indication: Breast cancer metastatic
     Dosage: ONCE EVERY 3 WEEKS
     Route: 042
     Dates: start: 20170227, end: 20170227
  33. ENHERTU [Suspect]
     Active Substance: FAM-TRASTUZUMAB DERUXTECAN-NXKI
     Indication: Breast cancer metastatic
     Dosage: ONCE EVERY 3 WEEKS
     Route: 042
     Dates: start: 20170112, end: 20170112
  34. ESOMEPRAZOLE [Concomitant]
     Active Substance: ESOMEPRAZOLE
     Indication: Product used for unknown indication
     Dosage: UNK
     Route: 065
     Dates: start: 20221123
  35. SUCRALAN [Concomitant]
     Indication: Prophylaxis
     Dosage: TIME INTERVAL: AS NECESSARY
     Route: 048
     Dates: start: 20161215
  36. IMODIUM [Concomitant]
     Active Substance: LOPERAMIDE HYDROCHLORIDE
     Indication: Diarrhoea
     Route: 048
     Dates: start: 20171106, end: 20171127
  37. IMODIUM [Concomitant]
     Active Substance: LOPERAMIDE HYDROCHLORIDE
     Indication: Diarrhoea
     Dosage: UNK
     Route: 065
  38. TRACEL [Concomitant]
     Indication: Product used for unknown indication
     Dosage: UNK
     Route: 065
  39. TRAZODONE HYDROCHLORIDE [Concomitant]
     Active Substance: TRAZODONE HYDROCHLORIDE
     Indication: Product used for unknown indication
     Dosage: UNK
     Route: 065
     Dates: start: 20221129
  40. TUCATINIB [Suspect]
     Active Substance: TUCATINIB
     Indication: HER2 positive breast cancer
     Dosage: 300 MG, 2/ DAY
     Route: 065
     Dates: start: 20210929, end: 20221023
  41. TUCATINIB [Suspect]
     Active Substance: TUCATINIB
     Indication: HER2 positive breast cancer
     Dosage: 600 MILLIGRAM, QD (300 MG)
     Route: 065
     Dates: end: 20210927
  42. LASIX [Concomitant]
     Active Substance: FUROSEMIDE
     Indication: Prophylaxis
     Route: 042
     Dates: start: 20161112, end: 20161114
  43. LASIX [Concomitant]
     Active Substance: FUROSEMIDE
     Indication: Prophylaxis
     Dosage: 30 MG, QD (120 MG)
     Route: 048
     Dates: start: 20161114, end: 201611
  44. LOPERAMIDE [Suspect]
     Active Substance: LOPERAMIDE
     Indication: Diarrhoea
     Dosage: TIME INTERVAL: AS NECESSARY
     Route: 048
     Dates: start: 20171127
  45. LOPERAMIDE [Suspect]
     Active Substance: LOPERAMIDE
     Indication: Diarrhoea
     Dosage: LOPERAMIDE HYDROCHLORIDE
     Route: 048
     Dates: start: 20171106, end: 20171127
  46. XARELTO [Concomitant]
     Active Substance: RIVAROXABAN
     Indication: Product used for unknown indication
     Route: 048
     Dates: start: 20161026, end: 201612
  47. PANTOPRAZOLE SODIUM [Concomitant]
     Active Substance: PANTOPRAZOLE SODIUM
     Indication: Product used for unknown indication
     Route: 048
     Dates: start: 20161018, end: 20161030
  48. PANTOPRAZOLE SODIUM [Concomitant]
     Active Substance: PANTOPRAZOLE SODIUM
     Indication: Product used for unknown indication
     Route: 042
     Dates: start: 20161010, end: 20161018
  49. PANTOPRAZOLE SODIUM [Concomitant]
     Active Substance: PANTOPRAZOLE SODIUM
     Indication: Product used for unknown indication
     Route: 048
     Dates: start: 20161031, end: 20161123
  50. CERNEVIT [Concomitant]
     Active Substance: VITAMINS
     Indication: Product used for unknown indication
     Dosage: UNK
     Route: 065
  51. BISOPROLOL FUMARATE [Concomitant]
     Active Substance: BISOPROLOL FUMARATE
     Indication: Prophylaxis
     Route: 048
     Dates: start: 20161117, end: 20170226
  52. BISOPROLOL FUMARATE [Concomitant]
     Active Substance: BISOPROLOL FUMARATE
     Indication: Prophylaxis
     Route: 048
     Dates: start: 20170227
  53. SERTRALINE [Concomitant]
     Active Substance: SERTRALINE HYDROCHLORIDE
     Indication: Depression
     Dosage: UNK
     Route: 048
     Dates: start: 20171016
  54. SERTRALINE [Concomitant]
     Active Substance: SERTRALINE HYDROCHLORIDE
     Indication: Depression
     Dosage: UNK
     Route: 048
     Dates: start: 20230714
  55. HALDOL [Concomitant]
     Active Substance: HALOPERIDOL
     Indication: Prophylaxis of nausea and vomiting
     Route: 048
     Dates: start: 201702
  56. DEXIBUPROFEN [Concomitant]
     Active Substance: DEXIBUPROFEN
     Indication: Pain prophylaxis
     Route: 048
     Dates: start: 20210312, end: 20231125
  57. ARANESP [Suspect]
     Active Substance: DARBEPOETIN ALFA
     Indication: Anaemia prophylaxis
     Dosage: ONCE EVERY 3 WEEKS
     Route: 058
     Dates: start: 20161201, end: 201701
  58. ARANESP [Suspect]
     Active Substance: DARBEPOETIN ALFA
     Indication: Anaemia prophylaxis
     Dosage: ONCE EVERY 1 MONTH
     Route: 058
     Dates: start: 20161201, end: 201701
  59. RAMIPRIL [Concomitant]
     Active Substance: RAMIPRIL
     Indication: Cardiovascular event prophylaxis
     Route: 048
     Dates: start: 20170227
  60. RAMIPRIL [Concomitant]
     Active Substance: RAMIPRIL
     Indication: Cardiovascular event prophylaxis
     Dosage: UNK
     Route: 048
     Dates: start: 20161222, end: 20170226
  61. RAMIPRIL [Concomitant]
     Active Substance: RAMIPRIL
     Indication: Cardiovascular event prophylaxis
     Route: 048
     Dates: start: 20161112, end: 20161221
  62. METOCLOPRAMIDE [Concomitant]
     Active Substance: METOCLOPRAMIDE
     Indication: Prophylaxis of nausea and vomiting
     Dosage: ONCE EVERY 3 WEEKS
     Route: 042
     Dates: start: 20180205
  63. ALPRAZOLAM [Concomitant]
     Active Substance: ALPRAZOLAM
     Indication: Product used for unknown indication
     Dosage: TIME INTERVAL: AS NECESSARY
     Route: 048
     Dates: start: 20161117
  64. TAXOTERE [Suspect]
     Active Substance: DOCETAXEL
     Indication: Breast cancer metastatic
     Dosage: ONCE EVERY 3 WEEKS
     Route: 042
     Dates: start: 20161111, end: 20161111
  65. TAXOTERE [Suspect]
     Active Substance: DOCETAXEL
     Indication: Breast cancer metastatic
     Dosage: ONCE EVERY 3 WEEKS
     Route: 042
     Dates: start: 20161020, end: 20161020
  66. TAXOTERE [Suspect]
     Active Substance: DOCETAXEL
     Indication: Breast cancer metastatic
     Dosage: ONCE EVERY 3 WEEKS
     Route: 042
     Dates: start: 20161201, end: 20170202
  67. AMOXICILLIN\CLAVULANATE POTASSIUM [Concomitant]
     Active Substance: AMOXICILLIN\CLAVULANATE POTASSIUM
     Indication: Product used for unknown indication
     Route: 048
     Dates: start: 20161212, end: 20161216
  68. PASPERTIN [Concomitant]
     Indication: Nausea
     Dosage: 3 AMPULE
     Route: 042
     Dates: start: 20161113
  69. LAXAGOL [Concomitant]
     Indication: Product used for unknown indication
     Dosage: UNK
     Route: 065
     Dates: start: 20201120
  70. FILGRASTIM [Concomitant]
     Active Substance: FILGRASTIM
     Indication: Product used for unknown indication
     Dosage: ONCE EVERY 1 WEEK
     Route: 058
     Dates: start: 20161208, end: 20161211
  71. GUAR GUM [Concomitant]
     Active Substance: GUAR GUM
     Indication: Prophylaxis
     Dosage: UNK
     Route: 048
     Dates: start: 20161102, end: 2016
  72. CALCIUM CARBONATE\VITAMIN D [Concomitant]
     Active Substance: CALCIUM CARBONATE\VITAMIN D
     Indication: Prophylaxis
     Dosage: 1 DF TWICE DAILY
     Route: 048
     Dates: start: 20161112
  73. DEXAMETHASONE [Concomitant]
     Active Substance: DEXAMETHASONE
     Indication: Prophylaxis
     Dosage: DEXAMETHASONE SODIUM PHOSPHATE
     Route: 048
     Dates: start: 20161202, end: 20161203
  74. DEXAMETHASONE [Concomitant]
     Active Substance: DEXAMETHASONE
     Indication: Prophylaxis
     Route: 048
     Dates: start: 20180117, end: 20180122
  75. AMOXICILLIN AND CLAVULANATE POTASSIUM [Concomitant]
     Active Substance: AMOXICILLIN\CLAVULANATE POTASSIUM
     Indication: Product used for unknown indication
     Dosage: UNK
     Route: 065
  76. KADCYLA [Suspect]
     Active Substance: ADO-TRASTUZUMAB EMTANSINE
     Indication: HER2 positive breast cancer
     Dosage: 3.6 MG/KG (216 MG), ONCE EVERY 3 WEEKS
     Route: 042
     Dates: start: 20180205, end: 20190816
  77. KADCYLA [Suspect]
     Active Substance: ADO-TRASTUZUMAB EMTANSINE
     Indication: HER2 positive breast cancer
     Route: 065
  78. DEXAMETHASONE [Concomitant]
     Active Substance: DEXAMETHASONE
     Indication: Headache
     Dosage: 8 MILLIGRAM (0.5)
     Route: 065
     Dates: start: 20180117, end: 20180122
  79. DEXAMETHASONE [Concomitant]
     Active Substance: DEXAMETHASONE
     Indication: Headache
     Dosage: UNK
     Route: 065
     Dates: start: 20221123, end: 20221215
  80. DEXAMETHASONE [Concomitant]
     Active Substance: DEXAMETHASONE
     Indication: Headache
     Route: 048
     Dates: start: 20180817, end: 20180831
  81. DEXAMETHASONE [Concomitant]
     Active Substance: DEXAMETHASONE
     Indication: Headache
     Dosage: 8 MILLIGRAM (0.5 DAY)
     Route: 048
     Dates: start: 20161202, end: 20161203
  82. PERTUZUMAB [Suspect]
     Active Substance: PERTUZUMAB
     Indication: HER2 positive breast cancer
     Dosage: ONCE EVERY 3 WEEKS
     Route: 042
     Dates: start: 20170112, end: 20170112
  83. PERTUZUMAB [Suspect]
     Active Substance: PERTUZUMAB
     Indication: HER2 positive breast cancer
     Dosage: PERTUZUMAB (DS-8201 STUDY), ONCE EVERY 3 WEEKS
     Route: 042
     Dates: start: 20161020, end: 20161020
  84. PERTUZUMAB [Suspect]
     Active Substance: PERTUZUMAB
     Indication: HER2 positive breast cancer
     Dosage: ONCE EVERY 3 WEEKS
     Route: 042
     Dates: start: 20170202, end: 20180108
  85. PERTUZUMAB [Suspect]
     Active Substance: PERTUZUMAB
     Indication: HER2 positive breast cancer
     Dosage: ONCE EVERY 3 WEEKS
     Route: 042
     Dates: start: 20190906, end: 20210409
  86. PERTUZUMAB [Suspect]
     Active Substance: PERTUZUMAB
     Indication: HER2 positive breast cancer
     Dosage: ONCE EVERY 3 WEEKS
     Route: 042
     Dates: start: 20170227, end: 20180108
  87. HALCION [Concomitant]
     Active Substance: TRIAZOLAM
     Indication: Sleep disorder
     Dosage: UNK
     Route: 048
     Dates: start: 2016, end: 201610
  88. FILGRASTIM [Concomitant]
     Active Substance: FILGRASTIM
     Indication: Product used for unknown indication
     Dosage: UNK
     Route: 065
     Dates: start: 20230811, end: 20230924
  89. MOVICOL [Concomitant]
     Active Substance: POLYETHYLENE GLYCOL 3350\POTASSIUM CHLORIDE\SODIUM BICARBONATE\SODIUM CHLORIDE
     Indication: Constipation prophylaxis
     Dosage: TIME INTERVAL: AS NECESSARY
     Route: 048
     Dates: end: 201706
  90. LIPEGFILGRASTIM [Concomitant]
     Active Substance: LIPEGFILGRASTIM
     Indication: Prophylaxis
     Dosage: ONCE EVERY 3 WEEKS
     Route: 058
     Dates: start: 20170113, end: 20170203
  91. FENTANYL [Concomitant]
     Active Substance: FENTANYL
     Indication: Pain prophylaxis
     Route: 062
     Dates: start: 201706
  92. APREPITANT [Concomitant]
     Active Substance: APREPITANT
     Indication: Nausea
     Dosage: UNK
     Route: 065
     Dates: start: 20221202
  93. APREPITANT [Concomitant]
     Active Substance: APREPITANT
     Indication: Nausea
     Dosage: UNK
     Route: 065
     Dates: start: 20221123
  94. PERFALGAN [Concomitant]
     Active Substance: ACETAMINOPHEN
     Indication: Product used for unknown indication
     Route: 042
     Dates: start: 20161208, end: 20161212
  95. HYDROMORPHONE HYDROCHLORIDE [Concomitant]
     Active Substance: HYDROMORPHONE HYDROCHLORIDE
     Indication: Pain prophylaxis
     Route: 048
     Dates: start: 20210326, end: 20210409
  96. HYDROMORPHONE HYDROCHLORIDE [Concomitant]
     Active Substance: HYDROMORPHONE HYDROCHLORIDE
     Indication: Pain prophylaxis
     Route: 048
     Dates: start: 20210410
  97. HYDROMORPHONE HYDROCHLORIDE [Concomitant]
     Active Substance: HYDROMORPHONE HYDROCHLORIDE
     Indication: Pain prophylaxis
     Route: 048
     Dates: start: 20190816, end: 20210326
  98. HYDROMORPHONE HYDROCHLORIDE [Concomitant]
     Active Substance: HYDROMORPHONE HYDROCHLORIDE
     Indication: Pain prophylaxis
     Route: 048
     Dates: start: 201706, end: 20210309
  99. HYDROMORPHONE HYDROCHLORIDE [Concomitant]
     Active Substance: HYDROMORPHONE HYDROCHLORIDE
     Indication: Pain prophylaxis
     Dosage: UNK
     Route: 065
     Dates: start: 20210309
  100. ACETAMINOPHEN [Concomitant]
     Active Substance: ACETAMINOPHEN
     Indication: Product used for unknown indication
     Dosage: UNK
     Route: 065
  101. ELLENCE [Suspect]
     Active Substance: EPIRUBICIN HYDROCHLORIDE
     Indication: Breast cancer metastatic
     Route: 042
     Dates: start: 20161005, end: 20161005
  102. MYSOLINE [Concomitant]
     Active Substance: PRIMIDONE
     Indication: Product used for unknown indication
     Dosage: UNK
     Route: 065
  103. TRASTUZUMAB DERUXTECAN [Suspect]
     Active Substance: TRASTUZUMAB DERUXTECAN
     Indication: HER2 positive breast cancer
     Dosage: ONCE EVERY 3 WEEKS, INJECTION, POWDER, LYOPHILIZED, FOR SOLUTION
     Route: 042
     Dates: start: 20230811
  104. TRASTUZUMAB DERUXTECAN [Suspect]
     Active Substance: TRASTUZUMAB DERUXTECAN
     Indication: HER2 positive breast cancer
     Dosage: ONCE EVERY 3 WEEKS, INJECTION, POWDER, LYOPHILIZED, FOR SOLUTION
     Route: 042
     Dates: start: 20220924, end: 20221114
  105. TRASTUZUMAB DERUXTECAN [Suspect]
     Active Substance: TRASTUZUMAB DERUXTECAN
     Indication: HER2 positive breast cancer
     Dosage: ONCE EVERY 3 WEEKS, INJECTION, POWDER, LYOPHILIZED, FOR SOLUTION
     Route: 042
     Dates: start: 20221202, end: 20230714
  106. GLANDOMED [Concomitant]
     Indication: Product used for unknown indication
     Dosage: TIME INTERVAL: AS NECESSARY
     Route: 061
     Dates: start: 20161208, end: 20161222
  107. HERCEPTIN [Suspect]
     Active Substance: TRASTUZUMAB
     Indication: Breast cancer metastatic
     Dosage: ONCE EVERY 3 WEEKS
     Route: 042
     Dates: start: 20190906, end: 20210927
  108. HERCEPTIN [Suspect]
     Active Substance: TRASTUZUMAB
     Indication: Breast cancer metastatic
     Dosage: ONCE EVERY 3 WEEKS
     Route: 042
     Dates: start: 20161020, end: 20161020
  109. HERCEPTIN [Suspect]
     Active Substance: TRASTUZUMAB
     Indication: Breast cancer metastatic
     Dosage: ONCE EVERY 3 WEEKS
     Route: 042
     Dates: start: 20170227, end: 20180108
  110. HERCEPTIN [Suspect]
     Active Substance: TRASTUZUMAB
     Indication: Breast cancer metastatic
     Dosage: ONCE EVERY 3 WEEKS
     Route: 042
     Dates: start: 20210929, end: 20220930
  111. HERCEPTIN [Suspect]
     Active Substance: TRASTUZUMAB
     Indication: Breast cancer metastatic
     Dosage: ONCE EVERY 3 WEEKS
     Route: 042
     Dates: start: 20170202, end: 20180108
  112. HERCEPTIN [Suspect]
     Active Substance: TRASTUZUMAB
     Indication: Breast cancer metastatic
     Dosage: ONCE EVERY 3 WEEKS
     Route: 042
     Dates: start: 20170112, end: 20170112
  113. CAPECITABINE [Suspect]
     Active Substance: CAPECITABINE
     Indication: Breast cancer metastatic
     Route: 048
     Dates: start: 20210904, end: 20210927
  114. CAPECITABINE [Suspect]
     Active Substance: CAPECITABINE
     Indication: Breast cancer metastatic
     Dosage: DAY 1- DAY 14
     Route: 048
     Dates: start: 20220204, end: 20220930
  115. CAPECITABINE [Suspect]
     Active Substance: CAPECITABINE
     Indication: Breast cancer metastatic
     Dosage: DAY 1- DAY 14
     Route: 048
     Dates: start: 20210904, end: 20220114
  116. CAPECITABINE [Suspect]
     Active Substance: CAPECITABINE
     Indication: Breast cancer metastatic
     Dosage: 2000 MG, QD (1000 MG, 2/DAY)
     Route: 048
     Dates: start: 20220204, end: 20220930
  117. CAPECITABINE [Suspect]
     Active Substance: CAPECITABINE
     Indication: Breast cancer metastatic
     Route: 048
     Dates: start: 20220930, end: 20221024
  118. CAPECITABINE [Suspect]
     Active Substance: CAPECITABINE
     Indication: Breast cancer metastatic
     Route: 048
     Dates: start: 20210430, end: 20210903
  119. CAPECITABINE [Suspect]
     Active Substance: CAPECITABINE
     Indication: Breast cancer metastatic
     Route: 048
     Dates: start: 20210929, end: 20220114
  120. CAPECITABINE [Suspect]
     Active Substance: CAPECITABINE
     Indication: Breast cancer metastatic
     Dosage: CAPECITABINE (DS-1062A STUDY) DS-CAP, 2000 MG, QD (1000 MG, 2/DAY)
     Route: 048
     Dates: start: 20210404, end: 20220114
  121. CYTOXAN [Suspect]
     Active Substance: CYCLOPHOSPHAMIDE
     Indication: HER2 positive breast cancer
     Route: 042
  122. CYTOXAN [Suspect]
     Active Substance: CYCLOPHOSPHAMIDE
     Indication: HER2 positive breast cancer
     Dosage: 500 MICROGRAM/SQ. METER, QD
     Route: 042
     Dates: start: 20161005, end: 20161005
  123. KCL [Concomitant]
     Active Substance: POTASSIUM CHLORIDE
     Indication: Prophylaxis
     Route: 048
     Dates: start: 20161117, end: 201702

REACTIONS (11)
  - Thrombocytopenia [Recovering/Resolving]
  - Nausea [Recovered/Resolved]
  - Dehydration [Recovered/Resolved]
  - Headache [Recovered/Resolved]
  - White blood cell count decreased [Not Recovered/Not Resolved]
  - Nausea [Recovered/Resolved]
  - White blood cell count decreased [Recovered/Resolved]
  - Thrombocytopenia [Recovering/Resolving]
  - Hemianopia [Recovered/Resolved]
  - Skin fissures [Recovered/Resolved]
  - Abdominal pain [Recovered/Resolved]

NARRATIVE: CASE EVENT DATE: 20180522
